FAERS Safety Report 4331165-8 (Version None)
Quarter: 2004Q1

REPORT INFORMATION
  Report Type: 
  Country: None (occurrence: None)
  Receive Date: 20040331
  Receipt Date: 20040317
  Transmission Date: 20041129
  Serious: Yes (Other)
  Sender: FDA-Public Use
  Company Number: 2004018667

PATIENT
  Age: 25 Year
  Sex: Male
  Weight: 64 kg

DRUGS (3)
  1. HYDROXYZINE HCL [Suspect]
     Indication: PREMEDICATION
     Dosage: 25 MG (ONCE), INTRAMUSCULAR
     Route: 030
  2. PENTAZOCINE LACTATE [Suspect]
     Indication: PREMEDICATION
     Dosage: 15 MG (ONCE), INTRAMUSCULAR
     Route: 030
  3. CINCHOCAINE HYDROCHLORIDE (CINCHOCAINE HYDROCHLORIDE) [Suspect]
     Indication: ANAESTHESIA
     Dosage: 2.2 ML (ONCE), INTRATHECAL
     Route: 037

REACTIONS (7)
  - BRADYCARDIA [None]
  - CEREBRAL ISCHAEMIA [None]
  - GRAND MAL CONVULSION [None]
  - LOSS OF CONSCIOUSNESS [None]
  - PARAESTHESIA [None]
  - PROCEDURAL COMPLICATION [None]
  - SENSORY LOSS [None]
